FAERS Safety Report 4765579-9 (Version None)
Quarter: 2005Q3

REPORT INFORMATION
  Report Type: 
  Country: None (occurrence: None)
  Receive Date: 20050912
  Receipt Date: 20050831
  Transmission Date: 20060218
  Serious: Yes (Other)
  Sender: FDA-Public Use
  Company Number: US-KINGPHARMUSA00001-K200501147

PATIENT

DRUGS (1)
  1. ALTACE [Suspect]

REACTIONS (2)
  - MICROALBUMINURIA [None]
  - RENAL FAILURE [None]
